FAERS Safety Report 21555124 (Version 2)
Quarter: 2022Q4

REPORT INFORMATION
  Report Type: Spontaneous
  Country: JP (occurrence: JP)
  Receive Date: 20221104
  Receipt Date: 20221207
  Transmission Date: 20230113
  Serious: Yes (Life-Threatening, Hospitalization)
  Sender: FDA-Public Use
  Company Number: JP-JNJFOC-20221108917

PATIENT
  Age: 74 Year
  Sex: Female

DRUGS (5)
  1. UPTRAVI [Suspect]
     Active Substance: SELEXIPAG
     Indication: Pulmonary arterial hypertension
     Route: 048
     Dates: start: 20210806
  2. UPTRAVI [Suspect]
     Active Substance: SELEXIPAG
     Route: 048
  3. ADCIRCA [Concomitant]
     Active Substance: TADALAFIL
     Indication: Pulmonary arterial hypertension
     Route: 048
  4. OPSUMIT [Concomitant]
     Active Substance: MACITENTAN
     Indication: Pulmonary arterial hypertension
  5. LEVOTHYROXINE [Concomitant]
     Active Substance: LEVOTHYROXINE
     Indication: Hypothyroidism
     Route: 065

REACTIONS (6)
  - Aortic dissection [Recovered/Resolved]
  - Hypothyroidism [Recovered/Resolved]
  - Renal impairment [Recovered/Resolved]
  - Interstitial lung disease [Unknown]
  - Pleural effusion [Unknown]
  - COVID-19 [Unknown]

NARRATIVE: CASE EVENT DATE: 20220629
